FAERS Safety Report 10709731 (Version 1)
Quarter: 2015Q1

REPORT INFORMATION
  Report Type: Report from Study
  Country: NL (occurrence: NL)
  Receive Date: 20150114
  Receipt Date: 20150114
  Transmission Date: 20150721
  Serious: Yes (Other)
  Sender: FDA-Public Use
  Company Number: NL-AMGEN-NLDSL2015002378

PATIENT
  Age: 52 Year
  Sex: Male

DRUGS (1)
  1. NPLATE [Suspect]
     Active Substance: ROMIPLOSTIM
     Indication: PRODUCT USED FOR UNKNOWN INDICATION
     Dosage: 88 MUG, QWK
     Route: 058

REACTIONS (2)
  - Muscular weakness [Unknown]
  - Cyst [Unknown]

NARRATIVE: CASE EVENT DATE: 201501
